FAERS Safety Report 22161776 (Version 1)
Quarter: 2023Q1

REPORT INFORMATION
  Report Type: Spontaneous
  Country: US (occurrence: US)
  Receive Date: 20230331
  Receipt Date: 20230331
  Transmission Date: 20230417
  Serious: No
  Sender: FDA-Public Use
  Company Number: US-BRISTOL-MYERS SQUIBB COMPANY-2023-046440

PATIENT
  Age: 63 Year
  Sex: Female

DRUGS (1)
  1. ORENCIA [Suspect]
     Active Substance: ABATACEPT
     Indication: Systemic scleroderma
     Dosage: FREQUENCY: WEEKLY
     Route: 058
     Dates: start: 202202

REACTIONS (3)
  - Headache [Unknown]
  - Pain in extremity [Unknown]
  - Anaemia [Unknown]
